FAERS Safety Report 5621778-5 (Version None)
Quarter: 2008Q1

REPORT INFORMATION
  Report Type: 
  Country: None (occurrence: None)
  Receive Date: 20080211
  Receipt Date: 20080130
  Transmission Date: 20080703
  Serious: Yes (Other)
  Sender: FDA-Public Use
  Company Number: PHHY2008CA01169

PATIENT

DRUGS (5)
  1. CALCIUM CHANNEL BLOCKERS [Concomitant]
  2. DIURETICS [Concomitant]
  3. BETA BLOCKING AGENTS [Concomitant]
  4. DIOVAN [Suspect]
     Dosage: 160 MG, QD
  5. DIOVAN [Suspect]
     Dosage: 320 MG, QD
     Dates: start: 20071113

REACTIONS (1)
  - URINE ALBUMIN/CREATININE RATIO INCREASED [None]
